FAERS Safety Report 7232048-6 (Version None)
Quarter: 2011Q1

REPORT INFORMATION
  Report Type: 
  Country: None (occurrence: None)
  Receive Date: 20110118
  Receipt Date: 20110110
  Transmission Date: 20110831
  Serious: Yes (Hospitalization, Other)
  Sender: FDA-Public Use
  Company Number: US-ELI_LILLY_AND_COMPANY-US201011005178

PATIENT
  Sex: Female
  Weight: 84.807 kg

DRUGS (5)
  1. BYETTA [Suspect]
     Dosage: 5 UG, DAILY (1/D)
     Route: 058
     Dates: start: 20100901
  2. ACTOS [Concomitant]
     Indication: TYPE 2 DIABETES MELLITUS
  3. STATIN                             /00084401/ [Concomitant]
     Indication: BLOOD CHOLESTEROL
     Dosage: 40 MG, UNK
  4. BYETTA [Suspect]
     Indication: TYPE 2 DIABETES MELLITUS
     Dosage: 5 UG, UNK
     Route: 058
     Dates: start: 20061101, end: 20061201
  5. GLYBURIDE [Concomitant]
     Indication: TYPE 2 DIABETES MELLITUS

REACTIONS (8)
  - GALLBLADDER DISORDER [None]
  - INJECTION SITE ERYTHEMA [None]
  - MALAISE [None]
  - EXPIRED DRUG ADMINISTERED [None]
  - CONVULSION [None]
  - VOMITING [None]
  - NAUSEA [None]
  - INJECTION SITE PRURITUS [None]
